FAERS Safety Report 5484763-2 (Version None)
Quarter: 2007Q4

REPORT INFORMATION
  Report Type: 
  Country: None (occurrence: None)
  Receive Date: 20071012
  Receipt Date: 20071001
  Transmission Date: 20080405
  Serious: Yes (Hospitalization, Other)
  Sender: FDA-Public Use
  Company Number: GB-PFIZER INC-2007074012

PATIENT
  Sex: Male
  Weight: 127.5 kg

DRUGS (11)
  1. CHAMPIX [Suspect]
     Indication: SMOKING CESSATION THERAPY
     Route: 048
     Dates: start: 20070705, end: 20070814
  2. WARFARIN SODIUM [Interacting]
  3. AMIODARONE [Concomitant]
     Route: 048
  4. AMITRIPTYLINE HCL [Concomitant]
     Route: 048
     Dates: start: 20050101
  5. BISOPROLOL FUMARATE [Concomitant]
     Route: 048
     Dates: start: 20060104
  6. CANDESARTAN CILEXETIL [Concomitant]
     Route: 048
     Dates: start: 20061024
  7. DIGOXIN [Concomitant]
     Route: 048
     Dates: start: 20061024
  8. LANSOPRAZOLE [Concomitant]
     Route: 048
     Dates: start: 20051123
  9. SIMVASTATIN [Concomitant]
     Route: 048
     Dates: start: 20060208
  10. SPIRONOLACTONE [Concomitant]
     Route: 048
     Dates: start: 20060208
  11. WARFARIN SODIUM [Concomitant]
     Route: 048
     Dates: start: 20060104, end: 20070904

REACTIONS (9)
  - ABDOMINAL PAIN [None]
  - DRUG INTERACTION [None]
  - GROIN PAIN [None]
  - HAEMATOMA INFECTION [None]
  - HAEMOGLOBIN DECREASED [None]
  - HAEMORRHAGE [None]
  - INTERNATIONAL NORMALISED RATIO ABNORMAL [None]
  - INTERNATIONAL NORMALISED RATIO INCREASED [None]
  - INTRA-ABDOMINAL HAEMATOMA [None]
